FAERS Safety Report 7312043-9 (Version None)
Quarter: 2011Q1

REPORT INFORMATION
  Report Type: 
  Country: None (occurrence: None)
  Receive Date: 20110224
  Receipt Date: 20100415
  Transmission Date: 20110831
  Serious: Yes (Hospitalization)
  Sender: FDA-Public Use
  Company Number: US-BRISTOL-MYERS SQUIBB COMPANY-15067671

PATIENT
  Age: 5 Decade
  Sex: Male

DRUGS (2)
  1. ERBITUX [Suspect]
     Indication: HEAD AND NECK CANCER
  2. TAXOL [Suspect]
     Indication: HEAD AND NECK CANCER

REACTIONS (1)
  - INFUSION RELATED REACTION [None]
